FAERS Safety Report 7220192-9 (Version None)
Quarter: 2011Q1

REPORT INFORMATION
  Report Type: 
  Country: None (occurrence: None)
  Receive Date: 20110111
  Receipt Date: 20101214
  Transmission Date: 20110831
  Serious: Yes (Death, Hospitalization)
  Sender: FDA-Public Use
  Company Number: JP-AMGEN-QUU440810

PATIENT

DRUGS (16)
  1. UNSPECIFIED HERBAL [Concomitant]
     Dosage: 2.5 UNK, UNK
  2. ENBREL [Suspect]
     Dosage: 25 MG, WEEKLY
     Route: 058
     Dates: start: 20100702, end: 20100827
  3. AMBROXOL HYDROCHLORIDE [Concomitant]
     Dosage: 15 MG, 3X/DAY
     Route: 048
  4. HYPEN [Concomitant]
     Dosage: 200 MG, 2X/DAY
     Route: 048
  5. COUGHNOL [Concomitant]
  6. MUCOSTA [Concomitant]
     Dosage: 100 MG, 3X/DAY
     Route: 048
  7. PREDONINE [Concomitant]
     Dosage: 5 MG, 1X/DAY
     Route: 048
  8. ENBREL [Suspect]
     Indication: RHEUMATOID ARTHRITIS
     Dosage: 25 MG, 2 TIMES/WK
     Route: 058
     Dates: start: 20100601, end: 20100901
  9. ENBREL [Suspect]
     Dosage: 25 MG
     Route: 058
     Dates: start: 20100602, end: 20100701
  10. MUCOSTA [Concomitant]
  11. GOODMIN [Concomitant]
  12. ENBREL [Suspect]
     Dosage: 25 MG, 1X/DAY
     Route: 058
     Dates: start: 20100904, end: 20100904
  13. HYPEN [Concomitant]
  14. ENBREL [Suspect]
  15. PREDNISOLONE [Concomitant]
  16. BROTIZOLAM [Concomitant]
     Dosage: 0.125 MG, 1X/DAY
     Route: 048

REACTIONS (2)
  - INTERSTITIAL LUNG DISEASE [None]
  - HERPES ZOSTER [None]
